FAERS Safety Report 6625596-0 (Version None)
Quarter: 2010Q1

REPORT INFORMATION
  Report Type: 
  Country: None (occurrence: None)
  Receive Date: 20100310
  Receipt Date: 20100304
  Transmission Date: 20100710
  Serious: Yes (Other)
  Sender: FDA-Public Use
  Company Number: GB-PURDUE-GBR-2010-0006217

PATIENT
  Age: 71 Year
  Weight: 121 kg

DRUGS (12)
  1. OXYCODONE HCL [Suspect]
     Indication: OSTEOARTHRITIS
     Dosage: 20 MG, BID
     Route: 048
     Dates: start: 20100208, end: 20100216
  2. TRAMADOL HYDROCHLORIDE [Concomitant]
  3. ASPIRIN [Concomitant]
  4. ACETAMINOPHEN AND CODEINE PHOSPHATE [Concomitant]
  5. DILZEM                             /00489702/ [Concomitant]
  6. DOTHIEPIN HYDROCHLORIDE [Concomitant]
  7. EXEMESTANE [Concomitant]
  8. METFORMIN HYDROCHLORIDE [Concomitant]
  9. OMEPRAZOLE [Concomitant]
  10. RAMIPRIL [Concomitant]
  11. SIMVASTATIN [Concomitant]
  12. ZOPICLONE [Concomitant]

REACTIONS (1)
  - ARTHRITIS [None]
